FAERS Safety Report 8910796 (Version 3)
Quarter: 2012Q4

REPORT INFORMATION
  Report Type: 
  Country: FR (occurrence: TR)
  Receive Date: 20121116
  Receipt Date: 20121129
  Transmission Date: 20130627
  Serious: Yes (Life-Threatening, Hospitalization)
  Sender: FDA-Public Use
  Company Number: FR-MYLANLABS-2012S1023386

PATIENT
  Age: 3 Year
  Sex: Female
  Weight: 10 kg

DRUGS (6)
  1. CYSTAGON [Suspect]
     Indication: CYSTINOSIS
     Route: 048
     Dates: start: 20100410, end: 20121027
  2. POTASSIUM CITRATE [Suspect]
     Indication: CYSTINOSIS
     Dates: start: 20101004
  3. CALCITRIOL [Concomitant]
     Indication: CYSTINOSIS
     Route: 048
     Dates: start: 20100410
  4. CARNITIN [Concomitant]
     Indication: CYSTINOSIS
     Dates: start: 20100410
  5. ALCOTRAL [Concomitant]
     Indication: CYSTINOSIS
     Dates: start: 20100410
  6. LALBIAL [Concomitant]
     Indication: CYSTINOSIS
     Dates: start: 20121001

REACTIONS (2)
  - Stevens-Johnson syndrome [Recovering/Resolving]
  - Wound [Not Recovered/Not Resolved]
